FAERS Safety Report 8512869-X (Version None)
Quarter: 2012Q3

REPORT INFORMATION
  Report Type: 
  Country: None (occurrence: None)
  Receive Date: 20120705
  Receipt Date: 20120620
  Transmission Date: 20120928
  Serious: Yes (Other)
  Sender: FDA-Public Use
  Company Number: ES-1192853

PATIENT
  Age: 65 Year
  Sex: Female
  Weight: 55 kg

DRUGS (4)
  1. INSULIN [Concomitant]
  2. ACTRAPID [Concomitant]
  3. LANTUS [Concomitant]
  4. TOBRADEX [Suspect]
     Indication: POSTOPERATIVE CARE
     Dosage: (1 DF Q2H OD OPHTHALMIC), (EVERY 6 HOURS OPHTHALMIC)
     Route: 047
     Dates: start: 20120525, end: 20120528

REACTIONS (2)
  - BLOOD GLUCOSE INCREASED [None]
  - INCREASED INSULIN REQUIREMENT [None]
